FAERS Safety Report 9017508 (Version 1)
Quarter: 2013Q1

REPORT INFORMATION
  Report Type: Other
  Country: GB (occurrence: GB)
  Receive Date: 20130117
  Receipt Date: 20130117
  Transmission Date: 20140127
  Serious: Yes (Death)
  Sender: FDA-Public Use
  Company Number: GB-WATSON-2013-00678

PATIENT
  Age: 44 Year
  Sex: Female
  Weight: 62 kg

DRUGS (7)
  1. DIAZEPAM (UNKNOWN) [Suspect]
     Indication: PRODUCT USED FOR UNKNOWN INDICATION
     Dosage: UNKNOWN
     Route: 065
  2. AMITRIPTYLINE [Suspect]
     Indication: PAIN
     Dosage: 25 MG, UNKNOWN
     Route: 048
  3. PEGASYS [Suspect]
     Indication: HEPATITIS C
     Dosage: 180 MCG, 1/WEEK
     Route: 058
     Dates: start: 20110209
  4. COPEGUS [Suspect]
     Indication: HEPATITIS C
     Dosage: 4000 MG, BID
     Route: 048
     Dates: start: 20110209
  5. METHADONE [Suspect]
     Indication: DRUG DEPENDENCE
     Dosage: UNKNOWN
     Route: 048
  6. DICLOFENAC [Concomitant]
     Indication: PRODUCT USED FOR UNKNOWN INDICATION
     Dosage: 50 MG, TID
     Route: 065
  7. SALBUTAMOL [Concomitant]
     Indication: PRODUCT USED FOR UNKNOWN INDICATION
     Dosage: 1 ONCE A DAY AS NECESSARY
     Route: 065

REACTIONS (1)
  - Toxicity to various agents [Fatal]
